FAERS Safety Report 7144831-6 (Version None)
Quarter: 2010Q4

REPORT INFORMATION
  Report Type: 
  Country: None (occurrence: None)
  Receive Date: 20101208
  Receipt Date: 20090903
  Transmission Date: 20110411
  Serious: Yes (Other)
  Sender: FDA-Public Use
  Company Number: FR-CELGENEUS-056-21880-10081783

PATIENT
  Age: 65 Year
  Sex: Male

DRUGS (8)
  1. REVLIMID [Suspect]
     Indication: MULTIPLE MYELOMA
     Route: 048
     Dates: start: 20071024
  2. KARDEGIC [Concomitant]
     Route: 065
  3. ATENOLOL [Concomitant]
     Route: 065
  4. SKENAN [Concomitant]
     Route: 065
  5. RIVOTRIL [Concomitant]
     Route: 065
  6. HEXAQUINE [Concomitant]
     Route: 065
  7. OGASTRO [Concomitant]
     Route: 065
  8. VITAMIN B-12 [Concomitant]
     Route: 065

REACTIONS (2)
  - CHEST PAIN [None]
  - PANCYTOPENIA [None]
